FAERS Safety Report 9900648 (Version 1)
Quarter: 2014Q1

REPORT INFORMATION
  Report Type: Spontaneous
  Country: US (occurrence: US)
  Receive Date: 20140217
  Receipt Date: 20140217
  Transmission Date: 20141002
  Serious: Yes (Other)
  Sender: FDA-Public Use
  Company Number: US-PAR PHARMACEUTICAL, INC-2014SCPR008910

PATIENT
  Sex: 0

DRUGS (8)
  1. GLIPIZIDE [Suspect]
     Indication: DIABETES MELLITUS
     Dosage: 2 DF, / DAY IN THE MORNING
     Route: 048
     Dates: start: 201312
  2. GLIPIZIDE [Suspect]
     Dosage: 1 DF, / DAY, IN THE MORNING
     Route: 048
     Dates: end: 20140129
  3. DOXEPIN [Suspect]
     Indication: INSOMNIA
     Dosage: 1 DF, HS
     Route: 048
  4. METFORMIN [Concomitant]
     Indication: DIABETES MELLITUS
     Dosage: 1 DF, TID
     Route: 048
  5. OXYCODONE [Concomitant]
     Indication: PAIN
     Dosage: 80 MG, TID
     Route: 048
  6. NORCO [Concomitant]
     Indication: PRODUCT USED FOR UNKNOWN INDICATION
     Dosage: UNK UNK, QID
     Route: 048
  7. XOPENEX [Concomitant]
     Indication: ASTHMA
     Dosage: 2 SPR, EVERY 6 HOURS
     Route: 048
  8. FLOVENT [Concomitant]
     Indication: ASTHMA
     Dosage: UNK, UNKNOWN
     Route: 048

REACTIONS (2)
  - Intentional drug misuse [Unknown]
  - Blood glucose decreased [Recovered/Resolved]
